FAERS Safety Report 15443208 (Version 9)
Quarter: 2022Q1

REPORT INFORMATION
  Report Type: Spontaneous
  Country: FR (occurrence: FR)
  Receive Date: 20180928
  Receipt Date: 20220308
  Transmission Date: 20220424
  Serious: Yes (Hospitalization, Other)
  Sender: FDA-Public Use
  Company Number: None

PATIENT
  Age: 23 Year
  Sex: Male
  Weight: 49 kg

DRUGS (26)
  1. FLUCONAZOLE [Suspect]
     Active Substance: FLUCONAZOLE
     Indication: Rash
     Dosage: 100 MG QD
     Route: 048
     Dates: start: 20090119
  2. FLUCONAZOLE [Suspect]
     Active Substance: FLUCONAZOLE
     Dosage: 200 MG, 1X/DAY
     Route: 048
     Dates: start: 20090119, end: 20090130
  3. CALCIUM CARBONATE [Suspect]
     Active Substance: CALCIUM CARBONATE
     Indication: Product used for unknown indication
     Dosage: 1 DF, DAILY (DRUG START PERIOD10 (DAYS)
     Route: 048
     Dates: start: 20081227
  4. METHYLPREDNISOLONE SODIUM SUCCINATE [Suspect]
     Active Substance: METHYLPREDNISOLONE SODIUM SUCCINATE
     Indication: Crohn^s disease
     Dosage: UNK
     Route: 042
     Dates: start: 20081112, end: 20091112
  5. METHYLPREDNISOLONE SODIUM SUCCINATE [Suspect]
     Active Substance: METHYLPREDNISOLONE SODIUM SUCCINATE
     Indication: Abscess
     Dosage: 100 MG, UNK
     Route: 042
     Dates: start: 20090120
  6. SOLU-MEDROL [Suspect]
     Active Substance: METHYLPREDNISOLONE SODIUM SUCCINATE
     Indication: Crohn^s disease
     Dosage: 60 MG, UNK (DRUG START PERIOD148 (DAYS))
     Route: 048
     Dates: start: 20080811
  7. SOLU-MEDROL [Suspect]
     Active Substance: METHYLPREDNISOLONE SODIUM SUCCINATE
     Indication: Crohn^s disease
     Dosage: 100 MG, UNK
     Route: 042
     Dates: start: 20090120
  8. VANCOMYCIN HYDROCHLORIDE [Suspect]
     Active Substance: VANCOMYCIN HYDROCHLORIDE
     Indication: Abscess
     Dosage: 2 G, 1X/DAY
     Route: 042
     Dates: start: 20081220, end: 20090112
  9. VANCOMYCIN HYDROCHLORIDE [Suspect]
     Active Substance: VANCOMYCIN HYDROCHLORIDE
     Dosage: 2 G, 1X/DAY (DRUG START PERIOD17(DAYS) DRUG LAST PERIOD07 (DAYS))
     Route: 042
     Dates: start: 20081222, end: 20090112
  10. VANCOMYCIN HYDROCHLORIDE [Suspect]
     Active Substance: VANCOMYCIN HYDROCHLORIDE
     Dosage: 32 G, 1X/DAY (DRUG START PERIOD17 (DAYS), DRUG LAST PERIOD07 (DAYS))
     Route: 042
     Dates: start: 20081220, end: 20090112
  11. LOVENOX [Suspect]
     Active Substance: ENOXAPARIN SODIUM
     Indication: Product used for unknown indication
     Dosage: 1 DF, 1X/DAY
     Route: 058
     Dates: start: 20081224
  12. FOLIC ACID [Suspect]
     Active Substance: FOLIC ACID
     Indication: Product used for unknown indication
     Dosage: 3 DF, QD (DRUG START PERIOD14 (DAYS))
     Route: 048
     Dates: start: 20081223
  13. EBASTINE [Suspect]
     Active Substance: EBASTINE
     Indication: Rash
     Dosage: 1 DF, QD (GENERIC REPORTED AS EBASTINE)
     Route: 048
     Dates: start: 20090107
  14. ECONAZOLE NITRATE [Suspect]
     Active Substance: ECONAZOLE NITRATE
     Indication: Rash
     Dosage: 2 DF, UNK
     Route: 061
     Dates: start: 20090114
  15. AMINO ACIDS\DEXTROSE\ELECTROLYTES NOS [Suspect]
     Active Substance: AMINO ACIDS\DEXTROSE\ELECTROLYTES NOS
     Indication: Malnutrition
     Dosage: 4000 ML, 1X/DAY (DRUG START PERIOD9DAYS, LIPID EMULSION)
     Route: 041
     Dates: start: 20081228, end: 20090207
  16. AMINO ACIDS\DEXTROSE\ELECTROLYTES NOS [Suspect]
     Active Substance: AMINO ACIDS\DEXTROSE\ELECTROLYTES NOS
     Indication: Parenteral nutrition
     Dosage: LIPID EMULSIONDRUG START PERIOD9(DAYS)
     Route: 065
  17. TRANXENE [Suspect]
     Active Substance: CLORAZEPATE DIPOTASSIUM
     Indication: Anxiety
     Dosage: 1 DF, QD
     Route: 042
     Dates: start: 20081222, end: 20090123
  18. CALCIUM CARBONATE\CHOLECALCIFEROL [Suspect]
     Active Substance: CALCIUM CARBONATE\CHOLECALCIFEROL
     Indication: Product used for unknown indication
     Dosage: 1 DF, 1X/DAY
     Route: 048
     Dates: start: 20081227
  19. CILASTATIN SODIUM\IMIPENEM [Suspect]
     Active Substance: CILASTATIN SODIUM\IMIPENEM
     Indication: Abscess
     Dosage: DRUG START PERIOD15 (DAYS)
     Route: 042
     Dates: start: 20081222, end: 20090112
  20. PRIMAXIN IV [Suspect]
     Active Substance: CILASTATIN SODIUM\IMIPENEM
     Indication: Abscess
     Dosage: DRUG START PERIOD15 (DAYS)
     Route: 042
     Dates: start: 20081222, end: 20090112
  21. REMICADE [Suspect]
     Active Substance: INFLIXIMAB
     Indication: Crohn^s disease
     Dosage: 100 MG, UNK
     Route: 042
     Dates: start: 20090120
  22. ALANINE [Suspect]
     Active Substance: ALANINE
     Indication: Malnutrition
     Dosage: 4000 ML, DAILY
     Route: 041
     Dates: start: 20081228, end: 20090207
  23. ALANINE [Suspect]
     Active Substance: ALANINE
     Indication: Parenteral nutrition
  24. AERIUS (DESLORATADINE) [Suspect]
     Active Substance: DESLORATADINE
     Indication: Rash
     Dosage: 1 DF, 1X/DAY
     Route: 048
     Dates: start: 20090107
  25. CALCIUM CARBONATE\CITRIC ACID MONOHYDRATE [Suspect]
     Active Substance: CALCIUM CARBONATE\CITRIC ACID MONOHYDRATE
     Indication: Product used for unknown indication
     Dosage: UNK UNK, 1X/DAY
     Route: 048
     Dates: start: 20081227
  26. CALCIUM CARBONATE\CHOLECALCIFEROL [Suspect]
     Active Substance: CALCIUM CARBONATE\CHOLECALCIFEROL
     Indication: Product used for unknown indication
     Dosage: UNK, 1X/DAY
     Route: 048

REACTIONS (4)
  - Hepatic cytolysis [Recovering/Resolving]
  - Weight decreased [Unknown]
  - Malassezia infection [Unknown]
  - Off label use [Unknown]

NARRATIVE: CASE EVENT DATE: 20080811
